FAERS Safety Report 14483538 (Version 1)
Quarter: 2018Q1

REPORT INFORMATION
  Report Type: Report from Study
  Country: None (occurrence: BR)
  Receive Date: 20180204
  Receipt Date: 20180204
  Transmission Date: 20180509
  Serious: Yes (Other)
  Sender: FDA-Public Use
  Company Number: BR-ABBVIE-17K-020-2183162-00

PATIENT
  Age: 50 Year
  Sex: Female

DRUGS (1)
  1. HUMIRA [Suspect]
     Active Substance: ADALIMUMAB
     Indication: ANKYLOSING SPONDYLITIS
     Route: 058
     Dates: start: 20140623

REACTIONS (4)
  - Post procedural complication [Not Recovered/Not Resolved]
  - Sensitivity of teeth [Recovered/Resolved]
  - Dysphonia [Unknown]
  - Post procedural complication [Unknown]

NARRATIVE: CASE EVENT DATE: 201701
